FAERS Safety Report 8271585-2 (Version None)
Quarter: 2012Q2

REPORT INFORMATION
  Report Type: 
  Country: None (occurrence: None)
  Receive Date: 20120410
  Receipt Date: 20120405
  Transmission Date: 20120825
  Serious: Yes (Hospitalization)
  Sender: FDA-Public Use
  Company Number: US-GLAXOSMITHKLINE-A0865994A

PATIENT
  Age: 55 Year
  Sex: Male
  Weight: 134.5 kg

DRUGS (5)
  1. BAYCOL [Concomitant]
  2. AVANDIA [Suspect]
     Indication: TYPE 2 DIABETES MELLITUS
     Dosage: 4MG PER DAY
     Route: 048
     Dates: start: 19991201, end: 20070511
  3. MAVIK [Concomitant]
  4. PRINIVIL [Concomitant]
  5. ADVAIR DISKUS 100/50 [Concomitant]

REACTIONS (6)
  - ANXIETY [None]
  - GOUT [None]
  - GASTROOESOPHAGEAL REFLUX DISEASE [None]
  - NEUROPATHY PERIPHERAL [None]
  - MYOCARDIAL INFARCTION [None]
  - CARDIAC FAILURE CONGESTIVE [None]
